FAERS Safety Report 20403975 (Version 2)
Quarter: 2022Q1

REPORT INFORMATION
  Report Type: Spontaneous
  Country: GB (occurrence: GB)
  Receive Date: 20220131
  Receipt Date: 20220216
  Transmission Date: 20220423
  Serious: Yes (Hospitalization, Other)
  Sender: FDA-Public Use
  Company Number: None

PATIENT
  Age: 48 Year
  Sex: Male

DRUGS (3)
  1. QUETIAPINE FUMARATE [Suspect]
     Active Substance: QUETIAPINE FUMARATE
     Indication: Schizophrenia
     Dosage: 200 MILLIGRAM IN THE MORNING
     Route: 048
     Dates: start: 20220126
  2. QUETIAPINE FUMARATE [Suspect]
     Active Substance: QUETIAPINE FUMARATE
     Indication: Ill-defined disorder
     Dosage: 400 MILLIGRAM AT NIGHT
     Route: 048
  3. FLUOXETINE [Suspect]
     Active Substance: FLUOXETINE HYDROCHLORIDE
     Indication: Depression
     Dosage: 40 MILLIGRAM, IN THE MORNING
     Route: 048

REACTIONS (3)
  - Epilepsy [Recovered/Resolved]
  - Condition aggravated [Unknown]
  - Medication error [Unknown]

NARRATIVE: CASE EVENT DATE: 20220107
